FAERS Safety Report 4502381-7 (Version None)
Quarter: 2004Q4

REPORT INFORMATION
  Report Type: 
  Country: None (occurrence: None)
  Receive Date: 20041110
  Receipt Date: 20041026
  Transmission Date: 20050328
  Serious: Yes (Life-Threatening)
  Sender: FDA-Public Use
  Company Number: S03-341-539

PATIENT
  Age: 68 Year
  Sex: Female
  Weight: 73 kg

DRUGS (12)
  1. VELCADE [Suspect]
     Indication: MULTIPLE MYELOMA
     Dosage: 2.26 MG BIW, IV BOLUS
     Route: 040
     Dates: start: 20030901, end: 20030901
  2. ACETAMINOPHEN [Concomitant]
  3. LITICAN [Concomitant]
  4. NOVABAN [Concomitant]
  5. ZANTAC [Concomitant]
  6. RECORMON [Concomitant]
  7. CLEXANE [Concomitant]
  8. PANTOZOL [Concomitant]
  9. SOTALEX CAPSULE [Concomitant]
  10. CIPRAMIL [Concomitant]
  11. ELTHYRONE [Concomitant]
  12. TEMESTA [Concomitant]

REACTIONS (29)
  - ALANINE AMINOTRANSFERASE INCREASED [None]
  - ANTIBODY TEST POSITIVE [None]
  - ARRHYTHMIA [None]
  - ASPARTATE AMINOTRANSFERASE INCREASED [None]
  - ASTHENIA [None]
  - BLOOD CREATININE INCREASED [None]
  - BLOOD MAGNESIUM INCREASED [None]
  - BLOOD POTASSIUM INCREASED [None]
  - BLOOD PRESSURE DIASTOLIC DECREASED [None]
  - BLOOD SODIUM DECREASED [None]
  - BRADYCARDIA [None]
  - CALCINOSIS [None]
  - DIZZINESS [None]
  - DRUG TOXICITY [None]
  - FATIGUE [None]
  - HAEMORRHOIDS [None]
  - HEADACHE [None]
  - HYPERHIDROSIS [None]
  - HYPERTENSION [None]
  - HYPOKALAEMIA [None]
  - HYPOMAGNESAEMIA [None]
  - MALAISE [None]
  - MITRAL VALVE INCOMPETENCE [None]
  - RENAL FAILURE [None]
  - SINUSITIS [None]
  - THROMBOCYTOPENIA [None]
  - TORSADE DE POINTES [None]
  - TRANSFUSION REACTION [None]
  - TRICUSPID VALVE INCOMPETENCE [None]
